FAERS Safety Report 25834352 (Version 1)
Quarter: 2025Q3

REPORT INFORMATION
  Report Type: Spontaneous
  Country: EU (occurrence: EU)
  Receive Date: 20250923
  Receipt Date: 20250923
  Transmission Date: 20251020
  Serious: Yes (Other)
  Sender: SANOFI AVENTIS
  Company Number: None

PATIENT
  Age: 45 Year
  Sex: Male

DRUGS (12)
  1. ENOXAPARIN SODIUM [Suspect]
     Active Substance: ENOXAPARIN SODIUM
     Indication: Atrial fibrillation
     Dosage: 1 DF, QD
     Route: 058
     Dates: start: 20210615, end: 20210618
  2. ENOXAPARIN SODIUM [Suspect]
     Active Substance: ENOXAPARIN SODIUM
     Indication: Alcohol use disorder
  3. ENOXAPARIN SODIUM [Suspect]
     Active Substance: ENOXAPARIN SODIUM
     Indication: Essential hypertension
  4. RAMIPRIL [Suspect]
     Active Substance: RAMIPRIL
     Indication: Atrial fibrillation
     Dosage: 1 DF, QD
     Route: 048
     Dates: start: 20210616
  5. RAMIPRIL [Suspect]
     Active Substance: RAMIPRIL
     Indication: Alcohol use disorder
  6. RAMIPRIL [Suspect]
     Active Substance: RAMIPRIL
     Indication: Essential hypertension
  7. WARFARIN SODIUM [Suspect]
     Active Substance: WARFARIN SODIUM
     Indication: Atrial fibrillation
     Dosage: 1 DF, QD
     Route: 048
     Dates: start: 20210615
  8. WARFARIN SODIUM [Suspect]
     Active Substance: WARFARIN SODIUM
     Indication: Essential hypertension
  9. WARFARIN SODIUM [Suspect]
     Active Substance: WARFARIN SODIUM
     Indication: Alcohol use disorder
  10. INDAPAMIDE [Suspect]
     Active Substance: INDAPAMIDE
     Indication: Atrial fibrillation
     Dosage: 1 DF, QD
     Route: 048
     Dates: start: 20210616
  11. INDAPAMIDE [Suspect]
     Active Substance: INDAPAMIDE
     Indication: Alcohol use disorder
  12. INDAPAMIDE [Suspect]
     Active Substance: INDAPAMIDE
     Indication: Essential hypertension

REACTIONS (1)
  - Hypokalaemia [Unknown]

NARRATIVE: CASE EVENT DATE: 20210618
